FAERS Safety Report 4868471-4 (Version None)
Quarter: 2005Q4

REPORT INFORMATION
  Report Type: 
  Country: None (occurrence: None)
  Receive Date: 20051227
  Receipt Date: 20051213
  Transmission Date: 20060501
  Serious: Yes (Death, Hospitalization)
  Sender: FDA-Public Use
  Company Number: FABR-11324

PATIENT
  Age: 58 Year
  Sex: Male
  Weight: 54 kg

DRUGS (7)
  1. FABRAZYME [Suspect]
     Indication: FABRY'S DISEASE
     Dosage: 55 MG ONCE IV
     Route: 042
     Dates: start: 20051123, end: 20051123
  2. TOPROL [Concomitant]
  3. NORVASC [Concomitant]
  4. ALBUTEROL [Concomitant]
  5. PHOSLO [Concomitant]
  6. SPIRIVA [Concomitant]
  7. EPOGEN [Concomitant]

REACTIONS (8)
  - ABDOMINAL PAIN [None]
  - AZOTAEMIA [None]
  - CARDIOPULMONARY FAILURE [None]
  - CEREBROVASCULAR ACCIDENT [None]
  - ENCEPHALOPATHY [None]
  - MYOCARDIAL INFARCTION [None]
  - RENAL FAILURE CHRONIC [None]
  - TREATMENT NONCOMPLIANCE [None]
